FAERS Safety Report 13379519 (Version 1)
Quarter: 2017Q1

REPORT INFORMATION
  Report Type: Spontaneous
  Country: IN (occurrence: IN)
  Receive Date: 20170328
  Receipt Date: 20170328
  Transmission Date: 20170429
  Serious: Yes (Death, Hospitalization)
  Sender: FDA-Public Use
  Company Number: IN-PFIZER INC-2017054826

PATIENT
  Age: 53 Year
  Sex: Female

DRUGS (1)
  1. PALBACE [Suspect]
     Active Substance: PALBOCICLIB
     Indication: BREAST CANCER METASTATIC
     Dosage: 125 MG, 1X/DAY
     Route: 048
     Dates: start: 20170126

REACTIONS (7)
  - Decreased appetite [Unknown]
  - Vomiting [Unknown]
  - Immune system disorder [Unknown]
  - Platelet count decreased [Unknown]
  - Feeding disorder [Unknown]
  - Asthenia [Unknown]
  - Renal failure [Fatal]
